FAERS Safety Report 9689035 (Version 1)
Quarter: 2013Q4

REPORT INFORMATION
  Report Type: Spontaneous
  Country: CL (occurrence: CL)
  Receive Date: 20131114
  Receipt Date: 20131114
  Transmission Date: 20140711
  Serious: Yes (Other)
  Sender: FDA-Public Use
  Company Number: CL-PFIZER INC-2013321763

PATIENT
  Age: 70 Year
  Sex: Female

DRUGS (6)
  1. XALATAN [Suspect]
     Indication: GLAUCOMA
     Dosage: UNK
     Route: 047
     Dates: start: 2007
  2. OMEGA 3 [Concomitant]
  3. ICAPS [Concomitant]
  4. CARVEDILOL [Concomitant]
  5. DIGOXINE [Concomitant]
  6. KEFLEX [Concomitant]

REACTIONS (2)
  - Visual acuity reduced [Recovered/Resolved]
  - Arthropathy [Unknown]
